FAERS Safety Report 8769433 (Version 2)
Quarter: 2012Q4

REPORT INFORMATION
  Report Type: 
  Country: DE (occurrence: DE)
  Receive Date: 20120905
  Receipt Date: 20120905
  Transmission Date: 20130627
  Serious: Yes (Death, Other)
  Sender: FDA-Public Use
  Company Number: DE-PFIZER INC-2012214952

PATIENT
  Age: 73 Year
  Sex: Male
  Weight: 79 kg

DRUGS (3)
  1. BLINDED NO SUBJECT DRUG [Suspect]
     Dosage: 12.5 mg, 1x/day
     Dates: start: 20110413, end: 20110819
  2. BLINDED PLACEBO [Suspect]
     Dosage: 12.5 mg, 1x/day
     Dates: start: 20110413, end: 20110819
  3. SUNITINIB MALATE [Suspect]
     Dosage: 12.5 mg, 1x/day
     Dates: start: 20110413, end: 20110819

REACTIONS (3)
  - Lipase increased [Recovering/Resolving]
  - Gamma-glutamyltransferase increased [Not Recovered/Not Resolved]
  - Amylase increased [Not Recovered/Not Resolved]
